FAERS Safety Report 9126945 (Version 4)
Quarter: 2014Q4

REPORT INFORMATION
  Report Type: Report from Study
  Country: JP (occurrence: JP)
  Receive Date: 20130228
  Receipt Date: 20141118
  Transmission Date: 20150529
  Serious: Yes (Death, Hospitalization, Other)
  Sender: FDA-Public Use
  Company Number: PHHY2013JP018563

PATIENT
  Age: 40 Year
  Sex: Male
  Weight: 54 kg

DRUGS (8)
  1. SANDOSTATIN LAR DEPOT [Concomitant]
     Active Substance: OCTREOTIDE ACETATE
     Indication: PANCREATIC NEUROENDOCRINE TUMOUR
     Dosage: 20 MG
     Route: 030
     Dates: start: 20111014, end: 20120803
  2. MORPHINE HYDROCHLORIDE TRIHYDRATE [Concomitant]
     Indication: CANCER PAIN
     Dosage: 200 MG
     Route: 065
  3. ALIMTA [Suspect]
     Active Substance: PEMETREXED DISODIUM
     Indication: PANCREATIC NEUROENDOCRINE TUMOUR
     Dosage: 200 MG, DAILY
     Route: 065
     Dates: start: 20111025, end: 20120131
  4. AFINITOR [Suspect]
     Active Substance: EVEROLIMUS
     Indication: PANCREATIC NEUROENDOCRINE TUMOUR
     Dosage: 10 MG, DAILY
     Route: 048
     Dates: start: 20111222, end: 20120130
  5. DEXART [Concomitant]
     Active Substance: DEXAMETHASONE SODIUM PHOSPHATE
     Indication: CANCER PAIN
     Dosage: 1.65 MG
     Route: 065
  6. CARBOPLATIN. [Suspect]
     Active Substance: CARBOPLATIN
     Indication: PANCREATIC NEUROENDOCRINE TUMOUR
     Dosage: 60 MG
     Route: 065
     Dates: start: 20111025, end: 20120507
  7. AFINITOR [Suspect]
     Active Substance: EVEROLIMUS
     Dosage: 5 MG, DAILY
     Route: 048
     Dates: start: 20120131
  8. ALIMTA [Suspect]
     Active Substance: PEMETREXED DISODIUM
     Dosage: 150 MG, DAILY
     Dates: start: 20120221, end: 20120507

REACTIONS (16)
  - Pneumonia aspiration [Fatal]
  - Blood glucose increased [Unknown]
  - Bone marrow failure [Unknown]
  - Blood alkaline phosphatase increased [Unknown]
  - Gamma-glutamyltransferase increased [Unknown]
  - Anaemia [Recovering/Resolving]
  - Lymphocyte count decreased [Unknown]
  - Concomitant disease aggravated [Unknown]
  - Hypophagia [Fatal]
  - C-reactive protein increased [Unknown]
  - Platelet count decreased [Recovering/Resolving]
  - Pleural effusion [Not Recovered/Not Resolved]
  - Hypoalbuminaemia [Not Recovered/Not Resolved]
  - Asthenia [Fatal]
  - Pneumonia bacterial [Recovering/Resolving]
  - White blood cell count decreased [Recovering/Resolving]

NARRATIVE: CASE EVENT DATE: 20120131
